FAERS Safety Report 6915444-3 (Version None)
Quarter: 2010Q3

REPORT INFORMATION
  Report Type: 
  Country: None (occurrence: None)
  Receive Date: 20100809
  Receipt Date: 20100409
  Transmission Date: 20110219
  Serious: No
  Sender: FDA-Public Use
  Company Number: US-ABBOTT-10P-163-0638940-00

PATIENT
  Age: 18 Year
  Sex: Male

DRUGS (3)
  1. DEPAKOTE ER [Suspect]
     Indication: BIPOLAR DISORDER
     Dates: start: 20090901
  2. DEPAKOTE ER [Suspect]
     Indication: MIGRAINE PROPHYLAXIS
  3. DEPAKOTE ER [Suspect]
     Indication: OFF LABEL USE

REACTIONS (2)
  - FEELING ABNORMAL [None]
  - SOMNOLENCE [None]
